FAERS Safety Report 18325500 (Version 1)
Quarter: 2020Q3

REPORT INFORMATION
  Report Type: Spontaneous
  Country: US (occurrence: US)
  Receive Date: 20200929
  Receipt Date: 20200929
  Transmission Date: 20201103
  Serious: Yes (Hospitalization, Other)
  Sender: FDA-Public Use
  Company Number: US-BAYER-2020-204166

PATIENT
  Age: 69 Year
  Sex: Female

DRUGS (1)
  1. GADAVIST [Suspect]
     Active Substance: GADOBUTROL
     Indication: RENAL CYST
     Dosage: 10 MG, ONCE
     Route: 042
     Dates: start: 20200913, end: 20200913

REACTIONS (2)
  - Dependence on respirator [None]
  - Dyspnoea [None]

NARRATIVE: CASE EVENT DATE: 20200913
